FAERS Safety Report 13667198 (Version 1)
Quarter: 2017Q2

REPORT INFORMATION
  Report Type: Spontaneous
  Country: US (occurrence: US)
  Receive Date: 20170619
  Receipt Date: 20170619
  Transmission Date: 20170830
  Serious: Yes (Other)
  Sender: FDA-Public Use
  Company Number: US-TEVA-778812USA

PATIENT
  Sex: Male

DRUGS (4)
  1. BACLOFEN. [Suspect]
     Active Substance: BACLOFEN
     Indication: FATIGUE
  2. BACLOFEN. [Suspect]
     Active Substance: BACLOFEN
     Indication: ANXIETY
     Route: 065
  3. BACLOFEN. [Suspect]
     Active Substance: BACLOFEN
     Indication: ALCOHOLISM
     Dosage: 60 MILLIGRAM DAILY;
     Route: 065
  4. BACLOFEN. [Suspect]
     Active Substance: BACLOFEN
     Indication: MUSCLE SPASMS

REACTIONS (5)
  - Chest pain [Unknown]
  - Balance disorder [Unknown]
  - Memory impairment [Unknown]
  - Atrial fibrillation [Unknown]
  - Off label use [Unknown]
